FAERS Safety Report 16077637 (Version 1)
Quarter: 2019Q1

REPORT INFORMATION
  Report Type: Report from Study
  Country: MX (occurrence: MX)
  Receive Date: 20190315
  Receipt Date: 20190315
  Transmission Date: 20190418
  Serious: Yes (Hospitalization)
  Sender: FDA-Public Use
  Company Number: MX-UCBSA-2019009607

PATIENT
  Age: 32 Year
  Sex: Female
  Weight: 43 kg

DRUGS (9)
  1. VIMPAT [Suspect]
     Active Substance: LACOSAMIDE
     Dosage: 200 MG, 2X/DAY (BID)
     Route: 048
     Dates: start: 2018
  2. VIMPAT [Suspect]
     Active Substance: LACOSAMIDE
     Dosage: 3 TABLETS IN THE MORNING AND 4 TABLETS AT NIGHT
     Route: 048
     Dates: start: 20170828, end: 20170903
  3. VIMPAT [Suspect]
     Active Substance: LACOSAMIDE
     Dosage: 1 DF, 2X/DAY (BID)
     Route: 048
     Dates: start: 20170724, end: 20170730
  4. VIMPAT [Suspect]
     Active Substance: LACOSAMIDE
     Dosage: 3 DF, 2X/DAY (BID)
     Route: 048
     Dates: start: 20170821, end: 20170827
  5. BRIVARACETAM [Suspect]
     Active Substance: BRIVARACETAM
     Indication: SEIZURE
     Dosage: 50 MG, 2X/DAY (BID)
     Route: 048
     Dates: start: 20190124
  6. VIMPAT [Suspect]
     Active Substance: LACOSAMIDE
     Dosage: 1 TABLET IN THE MORNING AND 2 TABLETS AT NIGHT
     Route: 048
     Dates: start: 20170731, end: 20170806
  7. VIMPAT [Suspect]
     Active Substance: LACOSAMIDE
     Dosage: 2 DF, 2X/DAY (BID)
     Route: 048
     Dates: start: 20170807, end: 20170813
  8. VIMPAT [Suspect]
     Active Substance: LACOSAMIDE
     Dosage: 4 DF, 2X/DAY (BID)
     Route: 048
     Dates: start: 20170904, end: 2018
  9. VIMPAT [Suspect]
     Active Substance: LACOSAMIDE
     Indication: SEIZURE
     Dosage: 50 MG, ONCE DAILY (QD)
     Route: 048
     Dates: start: 20170717, end: 20170723

REACTIONS (2)
  - Epilepsy [Recovered/Resolved]
  - Vertigo [Recovered/Resolved]

NARRATIVE: CASE EVENT DATE: 201902
